FAERS Safety Report 8607386-2 (Version None)
Quarter: 2012Q3

REPORT INFORMATION
  Report Type: 
  Country: None (occurrence: None)
  Receive Date: 20120821
  Receipt Date: 20120809
  Transmission Date: 20120928
  Serious: Yes (Hospitalization)
  Sender: FDA-Public Use
  Company Number: US-BAYER-2012-036514

PATIENT
  Age: 23 Year
  Sex: Female
  Weight: 82.086 kg

DRUGS (4)
  1. NASONEX [Concomitant]
     Dosage: 50 ?G, UNK
     Route: 045
     Dates: start: 20100202
  2. FLAGYL [Concomitant]
  3. UNASYN [Concomitant]
  4. YAZ [Suspect]
     Dosage: UNK
     Dates: start: 20080501, end: 20100501

REACTIONS (13)
  - CHOLECYSTITIS CHRONIC [None]
  - INJURY [None]
  - CONSTIPATION [None]
  - DEPRESSION [None]
  - CHOLECYSTECTOMY [None]
  - EMOTIONAL DISTRESS [None]
  - FLATULENCE [None]
  - SCAR [None]
  - DYSPEPSIA [None]
  - ABDOMINAL DISTENSION [None]
  - PANCREATITIS ACUTE [None]
  - ANXIETY [None]
  - DIARRHOEA [None]
